FAERS Safety Report 7161960-1 (Version None)
Quarter: 2010Q4

REPORT INFORMATION
  Report Type: 
  Country: None (occurrence: None)
  Receive Date: 20101215
  Receipt Date: 20100728
  Transmission Date: 20110411
  Serious: Yes (Other)
  Sender: FDA-Public Use
  Company Number: US-PFIZER INC-2010074999

PATIENT
  Sex: Female
  Weight: 74 kg

DRUGS (4)
  1. LYRICA [Suspect]
     Indication: FIBROMYALGIA
     Dosage: 75MG, 2X/DAY
     Dates: start: 20080214
  2. LYRICA [Suspect]
     Dosage: 150 UNK, 2X/DAY
     Dates: start: 20090101
  3. CELEBREX [Concomitant]
     Dosage: UNK
  4. ATIVAN [Concomitant]
     Indication: ANXIETY
     Dosage: UNK

REACTIONS (6)
  - AFFECTIVE DISORDER [None]
  - OEDEMA PERIPHERAL [None]
  - PAIN [None]
  - URINARY RETENTION [None]
  - WEIGHT DECREASED [None]
  - WEIGHT INCREASED [None]
